FAERS Safety Report 9325952 (Version 1)
Quarter: 2013Q2

REPORT INFORMATION
  Report Type: Spontaneous
  Country: US (occurrence: None)
  Receive Date: 20130603
  Receipt Date: 20130603
  Transmission Date: 20140414
  Serious: No
  Sender: FDA-Public Use
  Company Number: None

PATIENT
  Sex: Female
  Weight: 41 kg

DRUGS (2)
  1. LAMOTRIGINE [Suspect]
     Dosage: 50MG BID ORAL
     Route: 048
     Dates: start: 201001
  2. LAMOTRIGINE [Suspect]
     Dosage: 50MG BID ORAL
     Route: 048
     Dates: start: 201001

REACTIONS (2)
  - Convulsion [None]
  - Product substitution issue [None]
